FAERS Safety Report 10528770 (Version 1)
Quarter: 2014Q4

REPORT INFORMATION
  Report Type: Spontaneous
  Country: US (occurrence: None)
  Receive Date: 20141017
  Receipt Date: 20141017
  Transmission Date: 20150528
  Serious: No
  Sender: FDA-Public Use
  Company Number: None

PATIENT

DRUGS (1)
  1. ESTRADIOL. [Suspect]
     Active Substance: ESTRADIOL

REACTIONS (5)
  - Incorrect drug dosage form administered [None]
  - Drug ineffective [None]
  - Wrong drug administered [None]
  - Drug prescribing error [None]
  - Product formulation issue [None]
